FAERS Safety Report 23321245 (Version 6)
Quarter: 2025Q1

REPORT INFORMATION
  Report Type: Spontaneous
  Country: FR (occurrence: FR)
  Receive Date: 20231220
  Receipt Date: 20250228
  Transmission Date: 20250408
  Serious: Yes (Death, Hospitalization)
  Sender: ROCHE
  Company Number: FR-ROCHE-3477987

PATIENT
  Age: 54 Year
  Sex: Female

DRUGS (42)
  1. TRASTUZUMAB [Suspect]
     Active Substance: TRASTUZUMAB
     Indication: Breast cancer
     Route: 042
     Dates: start: 202111
  2. TRASTUZUMAB [Suspect]
     Active Substance: TRASTUZUMAB
     Indication: Prophylaxis
  3. TRASTUZUMAB [Suspect]
     Active Substance: TRASTUZUMAB
     Indication: Chemotherapy
  4. TRASTUZUMAB [Suspect]
     Active Substance: TRASTUZUMAB
     Indication: Hormone therapy
  5. TRASTUZUMAB [Suspect]
     Active Substance: TRASTUZUMAB
     Indication: Neoplasm malignant
  6. CAPECITABINE [Suspect]
     Active Substance: CAPECITABINE
     Indication: Breast cancer
     Route: 048
     Dates: start: 202111
  7. CAPECITABINE [Suspect]
     Active Substance: CAPECITABINE
     Indication: Prophylaxis
  8. CAPECITABINE [Suspect]
     Active Substance: CAPECITABINE
     Indication: Chemotherapy
  9. CAPECITABINE [Suspect]
     Active Substance: CAPECITABINE
     Indication: Hormone therapy
  10. CAPECITABINE [Suspect]
     Active Substance: CAPECITABINE
     Indication: Neoplasm malignant
  11. PERTUZUMAB [Suspect]
     Active Substance: PERTUZUMAB
     Indication: Breast cancer
     Route: 042
     Dates: start: 202012
  12. PERTUZUMAB [Suspect]
     Active Substance: PERTUZUMAB
     Indication: Neoplasm malignant
  13. PERTUZUMAB [Suspect]
     Active Substance: PERTUZUMAB
     Indication: Chemotherapy
  14. PERTUZUMAB [Suspect]
     Active Substance: PERTUZUMAB
     Indication: Hormone therapy
  15. PERTUZUMAB [Suspect]
     Active Substance: PERTUZUMAB
     Indication: Neoplasm malignant
  16. PERTUZUMAB [Suspect]
     Active Substance: PERTUZUMAB
     Indication: Prophylaxis
  17. LETROZOLE [Suspect]
     Active Substance: LETROZOLE
     Indication: Hormone therapy
     Route: 065
  18. LETROZOLE [Suspect]
     Active Substance: LETROZOLE
     Indication: Breast cancer
  19. LETROZOLE [Suspect]
     Active Substance: LETROZOLE
     Indication: Chemotherapy
  20. LETROZOLE [Suspect]
     Active Substance: LETROZOLE
     Indication: Neoplasm malignant
  21. LETROZOLE [Suspect]
     Active Substance: LETROZOLE
     Indication: Prophylaxis
  22. PACLITAXEL [Suspect]
     Active Substance: PACLITAXEL
     Indication: Breast cancer
     Route: 042
     Dates: start: 202012
  23. PACLITAXEL [Suspect]
     Active Substance: PACLITAXEL
     Indication: Neoplasm malignant
  24. PACLITAXEL [Suspect]
     Active Substance: PACLITAXEL
     Indication: Chemotherapy
  25. PACLITAXEL [Suspect]
     Active Substance: PACLITAXEL
     Indication: Hormone therapy
  26. PACLITAXEL [Suspect]
     Active Substance: PACLITAXEL
     Indication: Neoplasm malignant
  27. PACLITAXEL [Suspect]
     Active Substance: PACLITAXEL
     Indication: Prophylaxis
  28. TUCATINIB [Suspect]
     Active Substance: TUCATINIB
     Indication: Breast cancer
     Route: 048
     Dates: start: 202111
  29. TUCATINIB [Suspect]
     Active Substance: TUCATINIB
     Indication: Prophylaxis
  30. TUCATINIB [Suspect]
     Active Substance: TUCATINIB
     Indication: Chemotherapy
  31. TUCATINIB [Suspect]
     Active Substance: TUCATINIB
     Indication: Hormone therapy
  32. TUCATINIB [Suspect]
     Active Substance: TUCATINIB
     Indication: Neoplasm malignant
  33. TAXOTERE [Suspect]
     Active Substance: DOCETAXEL
     Indication: Chemotherapy
     Route: 065
     Dates: start: 202012
  34. TAXOTERE [Suspect]
     Active Substance: DOCETAXEL
     Indication: Prophylaxis
  35. TAXOTERE [Suspect]
     Active Substance: DOCETAXEL
     Indication: Breast cancer
  36. TAXOTERE [Suspect]
     Active Substance: DOCETAXEL
     Indication: Hormone therapy
  37. TAXOTERE [Suspect]
     Active Substance: DOCETAXEL
     Indication: Neoplasm malignant
  38. DOCETAXEL [Suspect]
     Active Substance: DOCETAXEL
     Indication: Chemotherapy
     Route: 065
     Dates: start: 202012
  39. DOCETAXEL [Suspect]
     Active Substance: DOCETAXEL
     Indication: Prophylaxis
  40. DOCETAXEL [Suspect]
     Active Substance: DOCETAXEL
     Indication: Breast cancer
  41. DOCETAXEL [Suspect]
     Active Substance: DOCETAXEL
     Indication: Hormone therapy
  42. DOCETAXEL [Suspect]
     Active Substance: DOCETAXEL
     Indication: Neoplasm malignant

REACTIONS (14)
  - Epilepsy [Fatal]
  - Metastases to adrenals [Fatal]
  - Metastases to meninges [Fatal]
  - Fall [Fatal]
  - Drug ineffective [Fatal]
  - Cerebral haematoma [Fatal]
  - Altered state of consciousness [Fatal]
  - Glossopharyngeal nerve paralysis [Fatal]
  - Hyperproteinaemia [Fatal]
  - Diplopia [Fatal]
  - Neurological decompensation [Fatal]
  - Dysarthria [Fatal]
  - Paraesthesia [Fatal]
  - Hypoglycaemia [Fatal]

NARRATIVE: CASE EVENT DATE: 20221201
